FAERS Safety Report 6687429-6 (Version None)
Quarter: 2010Q2

REPORT INFORMATION
  Report Type: 
  Country: None (occurrence: None)
  Receive Date: 20100415
  Receipt Date: 20100406
  Transmission Date: 20101027
  Serious: Yes (Death, Hospitalization)
  Sender: FDA-Public Use
  Company Number: 2010AL002030

PATIENT
  Age: 61 Year
  Sex: Female

DRUGS (5)
  1. METFORMIN HCL [Suspect]
  2. GLICLAZIDE [Concomitant]
  3. CANDESARTAN / HYDROCHLOROTHIAZIDE [Concomitant]
  4. QUINAPRIL [Concomitant]
  5. FUROSEMIDE [Concomitant]

REACTIONS (5)
  - DEHYDRATION [None]
  - DIARRHOEA [None]
  - LACTIC ACIDOSIS [None]
  - RENAL FAILURE ACUTE [None]
  - SHOCK [None]
